FAERS Safety Report 8550942-0 (Version None)
Quarter: 2012Q3

REPORT INFORMATION
  Report Type: 
  Country: None (occurrence: None)
  Receive Date: 20120730
  Receipt Date: 20110812
  Transmission Date: 20120928
  Serious: No
  Sender: FDA-Public Use
  Company Number: US-ALLERGAN-1110892US

PATIENT
  Sex: Female

DRUGS (2)
  1. LATISSE [Suspect]
     Dosage: UNK
     Dates: start: 20110712
  2. LATISSE [Suspect]
     Indication: PRODUCT USED FOR UNKNOWN INDICATION
     Dosage: UNK

REACTIONS (1)
  - EYE INJURY [None]
